FAERS Safety Report 21226601 (Version 3)
Quarter: 2022Q4

REPORT INFORMATION
  Report Type: Report from Study
  Country: CA (occurrence: CA)
  Receive Date: 20220818
  Receipt Date: 20221110
  Transmission Date: 20230113
  Serious: Yes (Other)
  Sender: FDA-Public Use
  Company Number: CA-JNJFOC-20220821611

PATIENT
  Age: 63 Year
  Sex: Male

DRUGS (2)
  1. REMICADE [Suspect]
     Active Substance: INFLIXIMAB
     Indication: Colitis ulcerative
     Route: 042
  2. REMICADE [Suspect]
     Active Substance: INFLIXIMAB
     Indication: Rheumatoid arthritis

REACTIONS (14)
  - Choking [Unknown]
  - Oral fungal infection [Not Recovered/Not Resolved]
  - Localised infection [Recovering/Resolving]
  - Malnutrition [Unknown]
  - Stomatitis [Recovering/Resolving]
  - Oropharyngeal pain [Unknown]
  - Dysphagia [Recovered/Resolved]
  - Weight decreased [Unknown]
  - Malaise [Unknown]
  - Pallor [Unknown]
  - Gait disturbance [Unknown]
  - Dyspnoea [Unknown]
  - Fatigue [Unknown]
  - Hyperhidrosis [Unknown]

NARRATIVE: CASE EVENT DATE: 20220725
